FAERS Safety Report 21657225 (Version 1)
Quarter: 2022Q4

REPORT INFORMATION
  Report Type: Spontaneous
  Country: FR (occurrence: FR)
  Receive Date: 20221129
  Receipt Date: 20221129
  Transmission Date: 20230112
  Serious: Yes (Hospitalization)
  Sender: FDA-Public Use
  Company Number: None

PATIENT
  Age: 18 Year
  Sex: Male
  Weight: 60 kg

DRUGS (1)
  1. DOXYCYCLINE [Suspect]
     Active Substance: DOXYCYCLINE
     Indication: Perioral dermatitis
     Dosage: 100 MILLIGRAM
     Route: 048
     Dates: start: 20220224, end: 20220825

REACTIONS (1)
  - Oesophagitis [Recovering/Resolving]
